FAERS Safety Report 5333480-8 (Version None)
Quarter: 2007Q2

REPORT INFORMATION
  Report Type: 
  Country: None (occurrence: None)
  Receive Date: 20070308
  Receipt Date: 20070103
  Transmission Date: 20071010
  Serious: No
  Sender: FDA-Public Use
  Company Number: 2006-BP-13454BP

PATIENT
  Age: 80 Year
  Sex: Female

DRUGS (5)
  1. SPIRIVA [Suspect]
     Indication: CHRONIC OBSTRUCTIVE PULMONARY DISEASE
     Dosage: SEE IMAGE
     Route: 055
     Dates: start: 20050101
  2. MAXIDE (HYDROCHLOROTHIAZIDE) [Concomitant]
  3. PROTONIX [Concomitant]
  4. CELEXA [Concomitant]
  5. DYAZIDE [Concomitant]

REACTIONS (2)
  - DYSPHONIA [None]
  - VOCAL CORD THICKENING [None]
